FAERS Safety Report 6681106-3 (Version None)
Quarter: 2010Q2

REPORT INFORMATION
  Report Type: 
  Country: None (occurrence: None)
  Receive Date: 20100413
  Receipt Date: 20100413
  Transmission Date: 20101027
  Serious: Yes (Hospitalization)
  Sender: FDA-Public Use
  Company Number: None

PATIENT
  Sex: Female
  Weight: 73 kg

DRUGS (8)
  1. CARBOPLATIN [Suspect]
     Dosage: 646 MG
     Dates: end: 20100408
  2. TAXOTERE [Suspect]
     Dosage: 132 MG
     Dates: end: 20100408
  3. TAXOL [Suspect]
     Dates: end: 20100325
  4. COUMADIN [Concomitant]
  5. LOVASTATIN [Concomitant]
  6. METOPROLOL TARTRATE [Concomitant]
  7. OXYCODONE [Concomitant]
  8. ZOFRAN [Concomitant]

REACTIONS (9)
  - ABDOMINAL TENDERNESS [None]
  - BODY TEMPERATURE INCREASED [None]
  - CATHETER SITE CELLULITIS [None]
  - CULTURE URINE POSITIVE [None]
  - DYSURIA [None]
  - ERYTHEMA [None]
  - HAEMOGLOBIN DECREASED [None]
  - INFUSION SITE INDURATION [None]
  - NAUSEA [None]
